FAERS Safety Report 8248390-6 (Version None)
Quarter: 2012Q1

REPORT INFORMATION
  Report Type: 
  Country: None (occurrence: None)
  Receive Date: 20120330
  Receipt Date: 20120322
  Transmission Date: 20120608
  Serious: Yes (Hospitalization)
  Sender: FDA-Public Use
  Company Number: GB-FRI-1000029375

PATIENT
  Age: 46 Year
  Sex: Male
  Weight: 43.5 kg

DRUGS (3)
  1. FOSFOMYCIN [Suspect]
     Indication: URINARY TRACT INFECTION
     Route: 048
     Dates: start: 20120309, end: 20120309
  2. TRIMETHOPRIM [Concomitant]
  3. LAXIDO [Concomitant]

REACTIONS (1)
  - NEUTROPENIA [None]
